FAERS Safety Report 23516715 (Version 1)
Quarter: 2024Q1

REPORT INFORMATION
  Report Type: 
  Country: None (occurrence: None)
  Receive Date: 20240213
  Receipt Date: 20240213
  Transmission Date: 20240410
  Serious: No
  Sender: FDA-Public Use
  Company Number: CN-ROCHE-2331618

PATIENT
  Weight: 49 kg

DRUGS (1)
  1. AVASTIN [Suspect]
     Active Substance: BEVACIZUMAB
     Dates: start: 20170427

REACTIONS (8)
  - Nasopharyngitis [None]
  - Pyrexia [None]
  - Malaise [None]
  - Pneumonitis [None]
  - Pseudomyxoma peritonei [None]
  - Cytoreductive surgery [None]
  - Metastases to abdominal cavity [None]
  - Metastases to pelvis [None]

NARRATIVE: CASE EVENT DATE: 20190531
